FAERS Safety Report 5410544-1 (Version None)
Quarter: 2007Q3

REPORT INFORMATION
  Report Type: 
  Country: None (occurrence: None)
  Receive Date: 20070810
  Receipt Date: 20070509
  Transmission Date: 20080115
  Serious: No
  Sender: FDA-Public Use
  Company Number: A0640619A

PATIENT
  Age: 6 Year
  Sex: Male

DRUGS (4)
  1. PAXIL [Suspect]
     Indication: POST-TRAUMATIC STRESS DISORDER
     Dosage: 40MG PER DAY
  2. PAROXETINE HYDROCHLORIDE [Suspect]
     Indication: DEPRESSION
     Dosage: 40MG PER DAY
  3. PHENOBARBITAL TAB [Concomitant]
     Indication: EPILEPSY
  4. XANAX [Concomitant]

REACTIONS (2)
  - ATTENTION DEFICIT/HYPERACTIVITY DISORDER [None]
  - DRUG EXPOSURE DURING PREGNANCY [None]
